FAERS Safety Report 22081209 (Version 2)
Quarter: 2023Q1

REPORT INFORMATION
  Report Type: Report from Study
  Country: FR (occurrence: FR)
  Receive Date: 20230309
  Receipt Date: 20230327
  Transmission Date: 20230417
  Serious: Yes (Hospitalization)
  Sender: FDA-Public Use
  Company Number: FR-ABBVIE-4331355

PATIENT
  Age: 57 Year
  Sex: Female
  Weight: 68 kg

DRUGS (21)
  1. UPADACITINIB [Suspect]
     Active Substance: UPADACITINIB
     Indication: Axial spondyloarthritis
     Route: 048
     Dates: start: 20220310
  2. METHOTREXATE [Concomitant]
     Active Substance: METHOTREXATE
     Indication: Axial spondyloarthritis
     Route: 058
     Dates: start: 202012
  3. FOLIC ACID [Concomitant]
     Active Substance: FOLIC ACID
     Indication: Axial spondyloarthritis
     Route: 048
     Dates: start: 202012
  4. OROCAL [Concomitant]
     Indication: Osteoporosis
     Dosage: DOSE UNIT: 1 SACHET
     Route: 048
     Dates: start: 2012
  5. RISEDRONATE SODIUM [Concomitant]
     Active Substance: RISEDRONATE SODIUM
     Indication: Osteoporosis
     Route: 048
     Dates: start: 2017
  6. PANTOPRAZOLE [Concomitant]
     Active Substance: PANTOPRAZOLE
     Indication: Prophylaxis
     Route: 048
     Dates: start: 2012
  7. DICLOFENAC [Concomitant]
     Active Substance: DICLOFENAC
     Indication: Axial spondyloarthritis
     Dosage: TIME INTERVAL: AS NECESSARY
     Route: 003
     Dates: start: 2012
  8. COVERAM ( PERINDOPRIL ARGININE 5MG/AMLODIPINE?BESILATE 5MG) [Concomitant]
     Indication: Hypertension
     Dosage: DOSE: 5/5 MG
     Route: 048
     Dates: start: 2012
  9. ESIDREX [Concomitant]
     Active Substance: HYDROCHLOROTHIAZIDE
     Indication: Diuretic therapy
     Route: 048
     Dates: start: 2012
  10. ATORVASTATIN [Concomitant]
     Active Substance: ATORVASTATIN
     Indication: Hypercholesterolaemia
     Route: 048
     Dates: start: 2012
  11. ACETAMINOPHEN [Concomitant]
     Active Substance: ACETAMINOPHEN
     Indication: Axial spondyloarthritis
     Dosage: TIME INTERVAL: AS NECESSARY
     Route: 048
     Dates: start: 2002
  12. OXAZEPAM [Concomitant]
     Active Substance: OXAZEPAM
     Indication: Anxiety
     Route: 048
     Dates: start: 2020
  13. PHLOROGLUCINOL [Concomitant]
     Active Substance: PHLOROGLUCINOL
     Indication: Abdominal pain upper
     Dosage: TIME INTERVAL: AS NECESSARY: DOSE UNIT: UNK MG
     Route: 048
     Dates: start: 2012
  14. BECLOMETHASONE DIPROPIONATE\FORMOTEROL FUMARATE\GLYCOPYRROLATE [Concomitant]
     Active Substance: BECLOMETHASONE DIPROPIONATE\FORMOTEROL FUMARATE\GLYCOPYRROLATE
     Indication: Asthma
     Route: 055
     Dates: start: 2016
  15. ALBUTEROL [Concomitant]
     Active Substance: ALBUTEROL
     Indication: Asthma
     Dosage: TIME INTERVAL: AS NECESSARY: DOSE UNIT: UNK MG
     Route: 055
     Dates: start: 2016
  16. ATROVENT [Concomitant]
     Active Substance: IPRATROPIUM BROMIDE
     Indication: Asthma
     Dosage: TIME INTERVAL: AS NECESSARY: DOSE UNIT: UNK MG
     Route: 055
     Dates: start: 2016
  17. IPRATROPIUM BROMIDE\FENOTEROL HYDROBROMIDE [Concomitant]
     Active Substance: FENOTEROL HYDROBROMIDE\IPRATROPIUM BROMIDE
     Indication: Asthma
     Dosage: TIME INTERVAL: AS NECESSARY
     Route: 055
     Dates: start: 2016
  18. LAMALINE [Concomitant]
     Indication: Axial spondyloarthritis
     Dosage: TIME INTERVAL: AS NECESSARY: DOSE UNIT: UNK MG
     Route: 048
     Dates: start: 202106
  19. ACUPAN [Concomitant]
     Active Substance: NEFOPAM HYDROCHLORIDE
     Indication: Axial spondyloarthritis
     Dosage: TIME INTERVAL: AS NECESSARY
     Route: 048
     Dates: start: 201606
  20. FASENRA [Concomitant]
     Active Substance: BENRALIZUMAB
     Indication: Asthma
     Dosage: TIME INTERVAL: AS NECESSARY
     Route: 058
     Dates: start: 2016
  21. PREDNISONE [Concomitant]
     Active Substance: PREDNISONE
     Indication: Asthma
     Route: 048
     Dates: start: 20220831, end: 20220903

REACTIONS (1)
  - Asthma [Recovered/Resolved]

NARRATIVE: CASE EVENT DATE: 20230305
